FAERS Safety Report 8795935 (Version 1)
Quarter: 2012Q4

REPORT INFORMATION
  Report Type: 
  Country: AU (occurrence: AU)
  Receive Date: 20120919
  Receipt Date: 20120919
  Transmission Date: 20130627
  Serious: Yes (Hospitalization, Other)
  Sender: FDA-Public Use
  Company Number: AU-PFIZER INC-2012112554

PATIENT
  Sex: Male

DRUGS (8)
  1. CYKLOKAPRON [Suspect]
     Indication: PROPHYLAXIS
     Route: 042
  2. METOPROLOL [Concomitant]
     Dosage: 190 mg, 1x/day
     Route: 048
  3. RAMIPRIL [Concomitant]
     Dosage: 10 mg, 1x/day
     Route: 048
  4. ATORVASTATIN [Concomitant]
     Dosage: 40 mg, 1x/day
     Route: 048
  5. ACETYLSALICYLIC ACID [Concomitant]
     Dosage: 100 mg, 1x/day
     Route: 048
  6. EPLERENONE [Concomitant]
     Dosage: 25 mg, 1x/day
     Route: 048
  7. PARACETAMOL [Concomitant]
     Dosage: 1 g, every six hours
     Route: 048
  8. RIVAROXABAN [Concomitant]
     Dosage: 10 mg, 1x/day
     Route: 048

REACTIONS (2)
  - Pulmonary embolism [Recovered/Resolved]
  - Dyspnoea [Unknown]
